FAERS Safety Report 7332947-0 (Version None)
Quarter: 2011Q1

REPORT INFORMATION
  Report Type: 
  Country: None (occurrence: None)
  Receive Date: 20110304
  Receipt Date: 20110218
  Transmission Date: 20110831
  Serious: Yes (Hospitalization, Other)
  Sender: FDA-Public Use
  Company Number: US-PFIZER INC-2011036688

PATIENT

DRUGS (15)
  1. BUSPAR [Concomitant]
     Dosage: 10 MG, 2X/DAY
  2. WARFARIN [Concomitant]
     Dosage: 4 MG, 1X/DAY
  3. TRICOR [Concomitant]
     Dosage: ONE TABLET ONCE A DAY
  4. PRISTIQ [Suspect]
     Dosage: 50 MG, 1X/DAY
     Dates: end: 20110201
  5. METOPROLOL [Concomitant]
     Dosage: 50 MG, 1X/DAY
  6. EFFEXOR [Concomitant]
     Dosage: 75 MG, 2X/DAY
  7. BENAZEPRIL [Concomitant]
     Dosage: 20 MG, 1X/DAY
  8. MAGNESIUM [Concomitant]
     Dosage: 400 MG, 1X/DAY
  9. LYRICA [Concomitant]
     Dosage: 75 MG, 2X/DAY
  10. CLONIDINE [Concomitant]
     Dosage: 0.1 MG, 2X/DAY
  11. CARISOPRODOL [Concomitant]
     Dosage: 350 MG, 1X/DAY
  12. LASIX [Concomitant]
     Dosage: 40 MG, 1X/DAY
  13. PROTONIX [Concomitant]
     Dosage: 40 MG, 1X/DAY
  14. FOLIC ACID [Concomitant]
     Dosage: 1 MG, 1X/DAY
  15. HYDROCODONE [Concomitant]
     Dosage: ONE TABLET AT BEDTIME

REACTIONS (5)
  - RESPIRATORY DISTRESS [None]
  - HYPERTENSION [None]
  - MENTAL DISORDER [None]
  - TREATMENT NONCOMPLIANCE [None]
  - SEROTONIN SYNDROME [None]
